FAERS Safety Report 9721680 (Version 2)
Quarter: 2013Q4

REPORT INFORMATION
  Report Type: Spontaneous
  Country: US (occurrence: US)
  Receive Date: 20131201
  Receipt Date: 20131201
  Transmission Date: 20140711
  Serious: No
  Sender: FDA-Public Use
  Company Number: US-ABBVIE-13P-163-1135397-00

PATIENT
  Age: 76 Year
  Sex: Male
  Weight: 90.8 kg

DRUGS (3)
  1. ANDROGEL 1.62% [Suspect]
     Indication: PRODUCT USED FOR UNKNOWN INDICATION
     Dosage: ONE PUMP PER DAY
     Dates: start: 20130723
  2. JALYN [Concomitant]
     Indication: PRODUCT USED FOR UNKNOWN INDICATION
  3. LOSARTAN [Concomitant]
     Indication: PRODUCT USED FOR UNKNOWN INDICATION

REACTIONS (2)
  - Musculoskeletal pain [Recovered/Resolved]
  - Fatigue [Not Recovered/Not Resolved]
